FAERS Safety Report 6688692-8 (Version None)
Quarter: 2010Q2

REPORT INFORMATION
  Report Type: 
  Country: None (occurrence: None)
  Receive Date: 20100420
  Receipt Date: 20100419
  Transmission Date: 20101027
  Serious: Yes (Hospitalization)
  Sender: FDA-Public Use
  Company Number: A0818011A

PATIENT
  Age: 64 Year
  Sex: Male

DRUGS (1)
  1. AVANDAMET [Suspect]
     Indication: DIABETES MELLITUS
     Route: 048
     Dates: start: 19970101, end: 20040101

REACTIONS (3)
  - ADVERSE EVENT [None]
  - ANGINA PECTORIS [None]
  - CARDIAC FAILURE [None]
